FAERS Safety Report 9441138 (Version 3)
Quarter: 2013Q3

REPORT INFORMATION
  Report Type: Spontaneous
  Country: JP (occurrence: JP)
  Receive Date: 20130805
  Receipt Date: 20130819
  Transmission Date: 20140515
  Serious: Yes (Hospitalization)
  Sender: FDA-Public Use
  Company Number: JP-GLAXOSMITHKLINE-B0912944A

PATIENT
  Age: 83 Year
  Sex: Female

DRUGS (4)
  1. REQUIP [Suspect]
     Indication: PARKINSON^S DISEASE
     Dosage: 2MG TWICE PER DAY
     Route: 048
     Dates: start: 201302, end: 20130729
  2. LEVODOPA/CARBIDOPA [Concomitant]
     Indication: PARKINSON^S DISEASE
     Dosage: 100MG THREE TIMES PER DAY
     Route: 048
     Dates: start: 201302, end: 20130810
  3. LEVODOPA/CARBIDOPA [Concomitant]
     Indication: PARKINSON^S DISEASE
     Dosage: 150MG THREE TIMES PER DAY
     Route: 048
     Dates: start: 20130811
  4. FP-OD [Concomitant]
     Indication: PARKINSON^S DISEASE
     Dosage: 2.5MG PER DAY
     Route: 048
     Dates: start: 201306, end: 20130729

REACTIONS (6)
  - Parkinson^s disease [Unknown]
  - Muscular weakness [Recovering/Resolving]
  - Restlessness [Unknown]
  - Performance status decreased [Unknown]
  - Headache [Unknown]
  - Hallucination [Unknown]
